FAERS Safety Report 12547687 (Version 1)
Quarter: 2016Q3

REPORT INFORMATION
  Report Type: Spontaneous
  Country: FR (occurrence: FR)
  Receive Date: 20160712
  Receipt Date: 20160712
  Transmission Date: 20161109
  Serious: Yes (Hospitalization)
  Sender: FDA-Public Use
  Company Number: FR-009507513-1607FRA003671

PATIENT
  Age: 95 Year
  Sex: Female

DRUGS (11)
  1. INVANZ [Suspect]
     Active Substance: ERTAPENEM SODIUM
     Indication: PYELONEPHRITIS
     Dosage: 1 G, 1 PER DAY
     Route: 058
     Dates: start: 20160510, end: 20160522
  2. TAHOR [Concomitant]
     Active Substance: ATORVASTATIN CALCIUM
  3. LASILIX [Concomitant]
     Active Substance: FUROSEMIDE
  4. BISOCOR [Concomitant]
     Active Substance: BISOPROLOL FUMARATE
  5. MOVICOL [Concomitant]
     Active Substance: POLYETHYLENE GLYCOL 3350\POTASSIUM CHLORIDE\SODIUM BICARBONATE\SODIUM CHLORIDE
  6. PANTOPRAZOLE [Concomitant]
     Active Substance: PANTOPRAZOLE SODIUM
  7. UVEDOSE [Concomitant]
     Active Substance: CHOLECALCIFEROL
  8. DIFFU-K [Concomitant]
     Active Substance: POTASSIUM CHLORIDE
  9. CALCIDOSE VITAMINE D [Concomitant]
     Active Substance: CALCIUM\CHOLECALCIFEROL
     Route: 048
  10. PLAVIX [Concomitant]
     Active Substance: CLOPIDOGREL BISULFATE
  11. NORMACOL [Concomitant]
     Active Substance: KARAYA GUM

REACTIONS (2)
  - Confusional state [Recovered/Resolved]
  - Hallucination, visual [Recovered/Resolved]

NARRATIVE: CASE EVENT DATE: 20160514
